FAERS Safety Report 9222509 (Version 1)
Quarter: 2013Q2

REPORT INFORMATION
  Report Type: Spontaneous
  Country: US (occurrence: US)
  Receive Date: 20130410
  Receipt Date: 20130410
  Transmission Date: 20140414
  Serious: Yes (Death)
  Sender: FDA-Public Use
  Company Number: US-CELGENEUS-163-21880-13040824

PATIENT
  Age: 72 Year
  Sex: Female

DRUGS (1)
  1. REVLIMID [Suspect]
     Indication: LICHENIFICATION
     Dosage: 5 MILLIGRAM
     Route: 048
     Dates: start: 201301, end: 201301

REACTIONS (1)
  - Death [Fatal]
